FAERS Safety Report 17099092 (Version 1)
Quarter: 2019Q4

REPORT INFORMATION
  Report Type: Spontaneous
  Country: US (occurrence: US)
  Receive Date: 20191202
  Receipt Date: 20191202
  Transmission Date: 20200122
  Serious: No
  Sender: FDA-Public Use
  Company Number: NVSC2019US053818

PATIENT
  Age: 60 Year
  Sex: Female
  Weight: 90.72 kg

DRUGS (3)
  1. DOXYCYCLINE HYCLATE. [Suspect]
     Active Substance: DOXYCYCLINE HYCLATE
     Indication: COUGH
     Route: 065
  2. PREPARATION H COOLING GEL [Suspect]
     Active Substance: PHENYLEPHRINE HYDROCHLORIDE\WITCH HAZEL
     Indication: HAEMORRHOIDS
     Dosage: UNK, PRN (APPLY TO AFFECTED AREA AS NEEDED UP TO FOUR TIMES DAILY)
     Route: 065
     Dates: start: 20191125
  3. AMOXICILLIN AND CLAVULANATE POTASSIUM TABLETS USP [Suspect]
     Active Substance: AMOXICILLIN\CLAVULANATE POTASSIUM
     Indication: COUGH
     Dosage: 875 MG
     Route: 065

REACTIONS (7)
  - Product use complaint [Unknown]
  - Pain [Unknown]
  - Product colour issue [Unknown]
  - Drug ineffective [Unknown]
  - Constipation [Unknown]
  - Cough [Unknown]
  - Diarrhoea [Unknown]

NARRATIVE: CASE EVENT DATE: 20191125
